FAERS Safety Report 19188086 (Version 1)
Quarter: 2021Q2

REPORT INFORMATION
  Report Type: Report from Study
  Country: US (occurrence: US)
  Receive Date: 20210428
  Receipt Date: 20210428
  Transmission Date: 20210717
  Serious: Yes (Hospitalization, Other)
  Sender: FDA-Public Use
  Company Number: US-BIOVITRUM-2020US3925

PATIENT
  Age: 33 Year
  Sex: Female

DRUGS (2)
  1. KINERET [Suspect]
     Active Substance: ANAKINRA
     Indication: STILL^S DISEASE
     Route: 058
     Dates: start: 20180719
  2. KINERET [Suspect]
     Active Substance: ANAKINRA
     Indication: PYODERMA GANGRENOSUM
     Route: 058
     Dates: start: 20180719

REACTIONS (8)
  - Still^s disease [Unknown]
  - Off label use [Unknown]
  - COVID-19 [Unknown]
  - Condition aggravated [Unknown]
  - Oxygen saturation decreased [Unknown]
  - Fatigue [Unknown]
  - Product dose omission issue [Unknown]
  - Dyspnoea [Unknown]

NARRATIVE: CASE EVENT DATE: 20180719
